FAERS Safety Report 17635328 (Version 1)
Quarter: 2020Q2

REPORT INFORMATION
  Report Type: Not Available
  Country: US (occurrence: US)
  Receive Date: 20200406
  Receipt Date: 20200406
  Transmission Date: 20200713
  Serious: No
  Sender: FDA-Public Use
  Company Number: US-NEUROCRINE BIOSCIENCES INC.-2020NBI01065

PATIENT
  Sex: Female

DRUGS (12)
  1. INGREZZA [Suspect]
     Active Substance: VALBENAZINE
     Route: 048
  2. PROMETHAZINE [Concomitant]
     Active Substance: PROMETHAZINE HYDROCHLORIDE
  3. ALLOPURINOL. [Concomitant]
     Active Substance: ALLOPURINOL
  4. BUPROPION. [Concomitant]
     Active Substance: BUPROPION
  5. CELEBREX [Concomitant]
     Active Substance: CELECOXIB
  6. PREDNISONE. [Concomitant]
     Active Substance: PREDNISONE
  7. CYCLOBENZAPRINE. [Concomitant]
     Active Substance: CYCLOBENZAPRINE
  8. MODAFINIL. [Concomitant]
     Active Substance: MODAFINIL
  9. CYMBALTA [Concomitant]
     Active Substance: DULOXETINE HYDROCHLORIDE
  10. PRIMIDONE. [Concomitant]
     Active Substance: PRIMIDONE
  11. MIRTAZAPINE. [Concomitant]
     Active Substance: MIRTAZAPINE
  12. INGREZZA [Suspect]
     Active Substance: VALBENAZINE
     Indication: TARDIVE DYSKINESIA
     Route: 048
     Dates: start: 20191001, end: 202003

REACTIONS (2)
  - Tremor [Not Recovered/Not Resolved]
  - Balance disorder [Not Recovered/Not Resolved]
